FAERS Safety Report 18855499 (Version 1)
Quarter: 2021Q1

REPORT INFORMATION
  Report Type: Spontaneous
  Country: CA (occurrence: CA)
  Receive Date: 20210206
  Receipt Date: 20210206
  Transmission Date: 20210420
  Serious: Yes (Other)
  Sender: FDA-Public Use
  Company Number: CA-TEVA-2021-CA-1876452

PATIENT
  Sex: Female
  Weight: 81 kg

DRUGS (19)
  1. ARAVA [Suspect]
     Active Substance: LEFLUNOMIDE
     Indication: PRODUCT USED FOR UNKNOWN INDICATION
     Route: 065
  2. CHLORHEXIDINE [Suspect]
     Active Substance: CHLORHEXIDINE
     Indication: RHEUMATOID ARTHRITIS
     Route: 058
  3. CIMZIA [Suspect]
     Active Substance: CERTOLIZUMAB PEGOL
     Indication: RHEUMATOID ARTHRITIS
     Route: 058
  4. SIMPONI [Suspect]
     Active Substance: GOLIMUMAB
     Indication: PRODUCT USED FOR UNKNOWN INDICATION
     Route: 058
  5. REACTINE [Concomitant]
  6. CETIRIZINE [Concomitant]
     Active Substance: CETIRIZINE HYDROCHLORIDE
  7. IBUPROFEN. [Concomitant]
     Active Substance: IBUPROFEN
  8. HYDROXYCHLOROQUINE [Concomitant]
     Active Substance: HYDROXYCHLOROQUINE
  9. VENTOLIN [Concomitant]
     Active Substance: ALBUTEROL SULFATE
  10. METHOTREXATE. [Suspect]
     Active Substance: METHOTREXATE
     Indication: PRODUCT USED FOR UNKNOWN INDICATION
     Route: 065
  11. PERIOGARD [Suspect]
     Active Substance: CHLORHEXIDINE GLUCONATE
     Indication: PRODUCT USED FOR UNKNOWN INDICATION
     Route: 065
  12. ZOPICLONE [Concomitant]
     Active Substance: ZOPICLONE
  13. ASCORBIC ACID (VITAMIN C) [Concomitant]
     Active Substance: ASCORBIC ACID
  14. PANTOPRAZOLE [Concomitant]
     Active Substance: PANTOPRAZOLE
  15. PREDNISONE. [Concomitant]
     Active Substance: PREDNISONE
  16. TYLENOL [Concomitant]
     Active Substance: ACETAMINOPHEN
  17. ACTEMRA [Suspect]
     Active Substance: TOCILIZUMAB
     Indication: PRODUCT USED FOR UNKNOWN INDICATION
     Route: 065
  18. ENBREL [Suspect]
     Active Substance: ETANERCEPT
     Indication: RHEUMATOID ARTHRITIS
     Route: 058
  19. ORENCIA [Suspect]
     Active Substance: ABATACEPT
     Indication: PRODUCT USED FOR UNKNOWN INDICATION
     Route: 065

REACTIONS (20)
  - Muscle spasticity [Unknown]
  - Body temperature increased [Unknown]
  - Pruritus [Unknown]
  - Sinusitis [Unknown]
  - Vomiting [Unknown]
  - Insomnia [Unknown]
  - Respiratory disorder [Unknown]
  - Back pain [Unknown]
  - Ear pain [Unknown]
  - Peripheral swelling [Unknown]
  - Diarrhoea [Unknown]
  - Headache [Unknown]
  - Joint swelling [Unknown]
  - Rash [Unknown]
  - Urticaria [Unknown]
  - Abdominal pain upper [Unknown]
  - Asthenia [Unknown]
  - Lower respiratory tract infection [Unknown]
  - Night sweats [Unknown]
  - Pain [Unknown]
